FAERS Safety Report 19230297 (Version 3)
Quarter: 2021Q3

REPORT INFORMATION
  Report Type: Spontaneous
  Country: US (occurrence: US)
  Receive Date: 20210507
  Receipt Date: 20210701
  Transmission Date: 20211014
  Serious: No
  Sender: FDA-Public Use
  Company Number: US-SA-2021SA149428

PATIENT
  Age: 84 Year
  Sex: Male

DRUGS (13)
  1. FLUTICASONE. [Concomitant]
     Active Substance: FLUTICASONE
  2. DUPIXENT [Suspect]
     Active Substance: DUPILUMAB
     Indication: CARDIAC FAILURE
  3. FLUOCINONIDE. [Concomitant]
     Active Substance: FLUOCINONIDE
  4. PREDNISONE. [Concomitant]
     Active Substance: PREDNISONE
  5. LEVALBUTEROL [LEVOSALBUTAMOL] [Concomitant]
     Active Substance: LEVALBUTEROL
  6. BUMETANIDE. [Concomitant]
     Active Substance: BUMETANIDE
  7. CARVEDILOL. [Concomitant]
     Active Substance: CARVEDILOL
  8. DUPIXENT [Suspect]
     Active Substance: DUPILUMAB
     Indication: MYOCARDIAL ISCHAEMIA
  9. DOXYCLIN [DOXYCYCLINE HYCLATE] [Concomitant]
  10. DUPIXENT [Suspect]
     Active Substance: DUPILUMAB
     Indication: DERMATITIS ATOPIC
     Dosage: 300 MG, QOW
     Route: 058
     Dates: start: 20210128
  11. POTASSIUM CHLORIDE. [Concomitant]
     Active Substance: POTASSIUM CHLORIDE
  12. WARFARIN [Concomitant]
     Active Substance: WARFARIN
  13. BUDESONIDE;FORMOTEROL [Concomitant]
     Active Substance: BUDESONIDE\FORMOTEROL

REACTIONS (5)
  - Discomfort [Unknown]
  - Rash [Unknown]
  - Injection site pain [Not Recovered/Not Resolved]
  - Dermatitis atopic [Not Recovered/Not Resolved]
  - Product use in unapproved indication [Unknown]

NARRATIVE: CASE EVENT DATE: 2021
